FAERS Safety Report 10273602 (Version 2)
Quarter: 2014Q3

REPORT INFORMATION
  Report Type: Spontaneous
  Country: FR (occurrence: None)
  Receive Date: 20140630
  Receipt Date: 20140728
  Transmission Date: 20150326
  Serious: Yes (Hospitalization)
  Sender: FDA-Public Use
  Company Number: 2014166433

PATIENT
  Age: 35 Year
  Sex: Female

DRUGS (10)
  1. FRAGMINE (DALTEPARIN SODIUM) SOLUTION FOR INJECTION [Suspect]
     Active Substance: DALTEPARIN SODIUM
     Dosage: 1 DF, 1X/DAY, SUBCUTANEOUS
     Route: 058
     Dates: start: 20140515, end: 20140523
  2. AUGMENTIN [Concomitant]
     Active Substance: AMOXICILLIN\CLAVULANATE POTASSIUM
  3. PERFALGAN [Suspect]
     Active Substance: ACETAMINOPHEN
     Route: 042
     Dates: start: 20140514, end: 20140523
  4. PARACETAMOL (PARACETAMOL) [Concomitant]
     Active Substance: ACETAMINOPHEN
  5. PREDNISOLON (PREDNISOLONE) [Concomitant]
  6. CEFOTAXIME (CEFOTAXIME) [Concomitant]
  7. NEFOPAM [Suspect]
     Active Substance: NEFOPAM
     Route: 048
     Dates: start: 20140514, end: 20140523
  8. PRIMPERAN [Suspect]
     Active Substance: METOCLOPRAMIDE HYDROCHLORIDE
     Dates: start: 20140514, end: 20140523
  9. AMOXICILLIN (AMOXICILLIN) [Concomitant]
     Active Substance: AMOXICILLIN
  10. ACICLOVIR [Suspect]
     Active Substance: ACYCLOVIR
     Route: 042
     Dates: start: 20140514, end: 20140523

REACTIONS (4)
  - Paraesthesia [None]
  - Meningoencephalitis herpetic [None]
  - Hepatitis [None]
  - Hepatocellular injury [None]

NARRATIVE: CASE EVENT DATE: 20140523
